FAERS Safety Report 13167545 (Version 6)
Quarter: 2017Q3

REPORT INFORMATION
  Report Type: Spontaneous
  Country: US (occurrence: US)
  Receive Date: 20170131
  Receipt Date: 20170721
  Transmission Date: 20171127
  Serious: No
  Sender: FDA-Public Use
  Company Number: US-PFIZER INC-2016312665

PATIENT
  Age: 73 Year
  Sex: Female
  Weight: 92.53 kg

DRUGS (8)
  1. LYRICA [Suspect]
     Active Substance: PREGABALIN
     Indication: DIABETIC NEUROPATHY
  2. LYRICA [Suspect]
     Active Substance: PREGABALIN
     Indication: SPONDYLITIS
     Dosage: 75 MG, 2X/DAY
     Route: 048
     Dates: end: 201701
  3. METOPROLOL TARTRATE. [Concomitant]
     Active Substance: METOPROLOL TARTRATE
     Dosage: 25 MG, 2X/DAY
     Route: 048
  4. NOVOLIN [Concomitant]
     Active Substance: INSULIN HUMAN
     Indication: DIABETES MELLITUS
     Dosage: UNK
  5. HYZAAR [Concomitant]
     Active Substance: HYDROCHLOROTHIAZIDE\LOSARTAN POTASSIUM
     Dosage: UNK[HYDROCHLOROTHIAZIDE 12.5 MG, LOSARTAN POTASSIUM 50 MG]
  6. LOSARTAN. [Concomitant]
     Active Substance: LOSARTAN
     Dosage: 0.5 MG, 1X/DAY
     Route: 048
  7. LYRICA [Suspect]
     Active Substance: PREGABALIN
     Indication: SPINAL OSTEOARTHRITIS
     Dosage: 75 MG, 1X/DAY
     Route: 048
     Dates: end: 201701
  8. LYRICA [Suspect]
     Active Substance: PREGABALIN
     Indication: TYPE 2 DIABETES MELLITUS
     Dosage: 75 MG, 2X/DAY
     Route: 048

REACTIONS (6)
  - Condition aggravated [Not Recovered/Not Resolved]
  - Pain [Unknown]
  - Visual impairment [Unknown]
  - Intentional product use issue [Not Recovered/Not Resolved]
  - Pruritus [Not Recovered/Not Resolved]
  - Pain in extremity [Not Recovered/Not Resolved]

NARRATIVE: CASE EVENT DATE: 201701
